FAERS Safety Report 8778705 (Version 1)
Quarter: 2012Q4

REPORT INFORMATION
  Report Type: Report from Study
  Country: JP (occurrence: JP)
  Receive Date: 20120912
  Receipt Date: 20120912
  Transmission Date: 20130627
  Serious: Yes (Life-Threatening, Hospitalization)
  Sender: FDA-Public Use
  Company Number: JP-BRISTOL-MYERS SQUIBB COMPANY-16942021

PATIENT
  Age: 66 Year
  Sex: Male

DRUGS (25)
  1. CARBOPLATIN [Suspect]
     Indication: ADULT T-CELL LYMPHOMA/LEUKAEMIA
     Route: 041
     Dates: start: 20101026, end: 20101208
  2. ETOPOSIDE [Suspect]
     Indication: ADULT T-CELL LYMPHOMA/LEUKAEMIA
     Route: 041
     Dates: start: 20101026, end: 20101208
  3. ADRIACIN [Suspect]
     Indication: ADULT T-CELL LYMPHOMA/LEUKAEMIA
     Dosage: 30 mg/m2:14Oct10,24Nov10,29Dec10,
40 mg/m2:16Nov10,22Dec10
Powder and solution for injection
     Route: 041
     Dates: start: 20101007
  4. ONCOVIN [Suspect]
     Indication: ADULT T-CELL LYMPHOMA/LEUKAEMIA
     Route: 041
     Dates: start: 20101007, end: 20101222
  5. ENDOXAN [Suspect]
     Indication: ADULT T-CELL LYMPHOMA/LEUKAEMIA
     Route: 041
     Dates: start: 20101007, end: 20101222
  6. PREDNISOLONE [Suspect]
     Indication: ADULT T-CELL LYMPHOMA/LEUKAEMIA
     Dosage: 10 mg on 18Nov2012
     Route: 048
     Dates: start: 20101007, end: 20101229
  7. FILDESIN [Suspect]
     Indication: ADULT T-CELL LYMPHOMA/LEUKAEMIA
     Route: 041
     Dates: start: 20101026, end: 20101208
  8. CYMERIN [Suspect]
     Indication: ADULT T-CELL LYMPHOMA/LEUKAEMIA
     Route: 041
     Dates: start: 20101014, end: 20101229
  9. BARACLUDE [Suspect]
     Indication: HEPATITIS B
     Route: 048
     Dates: start: 20100629, end: 20110719
  10. METHOTREXATE SODIUM [Suspect]
     Indication: ADULT T-CELL LYMPHOMA/LEUKAEMIA
     Dates: start: 20101118, end: 20101118
  11. AMLODIN [Suspect]
     Indication: HYPERTENSION
     Route: 048
     Dates: start: 20101008, end: 20110217
  12. DIFLUCAN [Suspect]
     Indication: ANTIFUNGAL PROPHYLAXIS
     Route: 048
     Dates: end: 20110128
  13. LYRICA [Suspect]
     Indication: PAIN
     Route: 048
     Dates: start: 20110629, end: 20110719
  14. VANCOMYCIN [Suspect]
     Route: 041
     Dates: start: 20110107, end: 20110117
  15. CYLOCIDE [Suspect]
     Indication: ADULT T-CELL LYMPHOMA/LEUKAEMIA
     Dates: start: 20101118, end: 20101118
  16. LANSOPRAZOLE [Suspect]
     Indication: GASTROOESOPHAGEAL REFLUX DISEASE
     Route: 048
     Dates: end: 20110217
  17. BAKTAR [Suspect]
     Indication: ANTIFUNGAL PROPHYLAXIS
     Dosage: Unk-28Jan2011,15Jul2011-ong
     Route: 048
  18. ZOVIRAX [Suspect]
     Indication: PROPHYLAXIS
     Dosage: 200 mg Unk-28Jan2011;12-19Jul2011
Unk dose 30Jun-08Jul2011
     Route: 048
  19. ZYLORIC [Suspect]
     Indication: HYPERURICAEMIA
     Route: 048
     Dates: end: 20110120
  20. LIPIDIL [Suspect]
     Indication: HYPERLIPIDAEMIA
     Route: 048
     Dates: end: 20110128
  21. MEROPEN [Suspect]
     Indication: PNEUMONIA
     Dosage: 0.5 g 7-24Jan11 17days
1 g 4-15Jul11 12 days
     Route: 041
     Dates: start: 20110107
  22. FENTANYL [Suspect]
     Indication: STOMATITIS
     Route: 041
     Dates: start: 20110102, end: 20110119
  23. MAGMITT [Suspect]
     Indication: CONSTIPATION
     Route: 048
     Dates: start: 20110107, end: 20110110
  24. PANTOSIN [Suspect]
     Indication: CONSTIPATION
     Route: 048
     Dates: start: 20110107, end: 20110110
  25. BIOFERMIN R [Suspect]
     Indication: PROCTITIS
     Route: 048
     Dates: start: 20101022, end: 20110217

REACTIONS (3)
  - Interstitial lung disease [Recovering/Resolving]
  - Pneumonia [Recovering/Resolving]
  - Herpes zoster [Unknown]
